FAERS Safety Report 13641918 (Version 2)
Quarter: 2017Q2

REPORT INFORMATION
  Report Type: Spontaneous
  Country: IT (occurrence: IT)
  Receive Date: 20170612
  Receipt Date: 20170621
  Transmission Date: 20170830
  Serious: Yes (Disabling)
  Sender: FDA-Public Use
  Company Number: IT-ROCHE-1947769

PATIENT
  Age: 80 Year
  Sex: Female

DRUGS (3)
  1. NATECAL [Concomitant]
     Active Substance: CALCIUM CARBONATE\CHOLECALCIFEROL
     Indication: OSTEOPOROSIS
     Route: 048
  2. BONVIVA [Suspect]
     Active Substance: IBANDRONATE SODIUM
     Indication: OSTEOPOROSIS
     Dosage: 150 MG, 1 BLISTER PACK (PVC/PVDC) 1 TABLET
     Route: 048
     Dates: start: 20110501, end: 20160501
  3. CARDIOASPIRIN [Concomitant]
     Active Substance: ASPIRIN
     Route: 048

REACTIONS (4)
  - Osteonecrosis of jaw [Not Recovered/Not Resolved]
  - Dysaesthesia [Not Recovered/Not Resolved]
  - Fistula [Not Recovered/Not Resolved]
  - Pain [Not Recovered/Not Resolved]

NARRATIVE: CASE EVENT DATE: 201612
